FAERS Safety Report 13286656 (Version 3)
Quarter: 2018Q1

REPORT INFORMATION
  Report Type: Spontaneous
  Country: DE (occurrence: DE)
  Receive Date: 20170301
  Receipt Date: 20180302
  Transmission Date: 20180508
  Serious: Yes (Life-Threatening, Hospitalization, Other)
  Sender: FDA-Public Use
  Company Number: DE-BIOGEN-2016BI00310739

PATIENT
  Age: 58 Year
  Sex: Female

DRUGS (6)
  1. ZINBRYTA [Suspect]
     Active Substance: DACLIZUMAB
     Route: 065
     Dates: start: 201609, end: 201611
  2. L-THYROXINE [Concomitant]
     Active Substance: LEVOTHYROXINE
     Indication: PRODUCT USED FOR UNKNOWN INDICATION
     Route: 065
  3. ZINBRYTA [Suspect]
     Active Substance: DACLIZUMAB
     Indication: RELAPSING-REMITTING MULTIPLE SCLEROSIS
     Route: 058
     Dates: start: 20160831, end: 20161024
  4. ZINBRYTA [Suspect]
     Active Substance: DACLIZUMAB
     Route: 065
     Dates: end: 20160928
  5. NOVAMINSULFON [Concomitant]
     Active Substance: METAMIZOLE
     Indication: PRODUCT USED FOR UNKNOWN INDICATION
     Dosage: 30 DROPS AS NEEDED
     Route: 065
  6. METOPROLOL SUCCINATE. [Concomitant]
     Active Substance: METOPROLOL SUCCINATE
     Indication: PRODUCT USED FOR UNKNOWN INDICATION
     Route: 065

REACTIONS (8)
  - Visual field defect [Unknown]
  - Disturbance in attention [Unknown]
  - Nasopharyngitis [Unknown]
  - Headache [Not Recovered/Not Resolved]
  - Lymphadenopathy [Unknown]
  - Embolic cerebral infarction [Recovered/Resolved with Sequelae]
  - Vertebral artery dissection [Not Recovered/Not Resolved]
  - Lymph node pain [Unknown]

NARRATIVE: CASE EVENT DATE: 20160930
